FAERS Safety Report 6697193-2 (Version None)
Quarter: 2010Q2

REPORT INFORMATION
  Report Type: 
  Country: None (occurrence: None)
  Receive Date: 20100426
  Receipt Date: 20100415
  Transmission Date: 20101027
  Serious: Yes (Other)
  Sender: FDA-Public Use
  Company Number: US-PFIZER INC-2010048406

PATIENT
  Age: 69 Year
  Sex: Female

DRUGS (5)
  1. XANAX [Suspect]
     Dosage: 0.5 MG, UNK
  2. LIPITOR [Suspect]
     Dosage: 20 MG, UNK
  3. LISINOPRIL [Suspect]
     Dosage: 20 MG, UNK
  4. ATENOLOL [Suspect]
     Dosage: 100 MG, UNK
  5. PLAVIX [Suspect]
     Dosage: 75 MG, UNK

REACTIONS (2)
  - PAIN IN EXTREMITY [None]
  - PARAESTHESIA [None]
